FAERS Safety Report 10953350 (Version 7)
Quarter: 2018Q3

REPORT INFORMATION
  Report Type: Spontaneous
  Country: US (occurrence: US)
  Receive Date: 20150325
  Receipt Date: 20180821
  Transmission Date: 20181010
  Serious: No
  Sender: FDA-Public Use
  Company Number: US-PFIZER INC-2015102040

PATIENT
  Age: 75 Year
  Sex: Female
  Weight: 86 kg

DRUGS (3)
  1. XELJANZ [Suspect]
     Active Substance: TOFACITINIB CITRATE
     Indication: RHEUMATOID ARTHRITIS
     Dosage: 5 MG, 2X/DAY
     Route: 048
     Dates: start: 201411
  2. DIOVAN HCT [Concomitant]
     Active Substance: HYDROCHLOROTHIAZIDE\VALSARTAN
     Indication: HYPERTENSION
     Dosage: UNK, DAILY
     Route: 048
     Dates: start: 1995
  3. XELJANZ [Suspect]
     Active Substance: TOFACITINIB CITRATE
     Indication: ARTHRITIS

REACTIONS (6)
  - Scratch [Recovered/Resolved]
  - Ear infection [Unknown]
  - Influenza [Unknown]
  - Hypoacusis [Unknown]
  - Skin lesion [Recovered/Resolved]
  - Ear discomfort [Unknown]

NARRATIVE: CASE EVENT DATE: 201503
